FAERS Safety Report 6567728-9 (Version None)
Quarter: 2010Q1

REPORT INFORMATION
  Report Type: 
  Country: None (occurrence: None)
  Receive Date: 20100203
  Receipt Date: 20100128
  Transmission Date: 20100710
  Serious: Yes (Hospitalization)
  Sender: FDA-Public Use
  Company Number: US-TEVA-218265USA

PATIENT
  Sex: Female

DRUGS (16)
  1. METHOTREXATE [Suspect]
     Indication: RHEUMATOID ARTHRITIS
     Dosage: 2.5 MG 6/1 WEEK
     Dates: start: 20090914
  2. ABATACEPT [Suspect]
     Indication: RHEUMATOID ARTHRITIS
     Dosage: 125 MG 1 WEEK
     Route: 058
     Dates: start: 20090914, end: 20091103
  3. PREDNISONE [Concomitant]
     Dates: start: 20090914
  4. ALENDRONATE SODIUM [Concomitant]
     Dates: start: 20090914
  5. FOLINIC ACID [Concomitant]
     Dates: start: 20090914
  6. VARENICLINE TARTRATE [Concomitant]
     Dates: start: 20090914
  7. MONTELUKAST [Concomitant]
     Dates: start: 20090514
  8. TIOTROPIUM BROMIDE [Concomitant]
     Dates: start: 20090210
  9. FORMOTEROL FUMARATE [Concomitant]
     Dates: start: 20090210
  10. POTASSIUM CHLORIDE [Concomitant]
     Dates: start: 20070904
  11. CALCIUM CARBONATE [Concomitant]
     Dates: start: 20060816
  12. ESTROGENS CONJUGATED [Concomitant]
     Dates: start: 20060323
  13. VENLAFAXINE HCL [Concomitant]
     Dates: start: 20060323
  14. VICODIN [Concomitant]
     Dates: start: 20090914
  15. BISACODYL [Concomitant]
     Dates: start: 20070129
  16. GUAIFENESIN/PSEUDOEP. HCL/COD. PHOS. [Concomitant]
     Dates: start: 20091023

REACTIONS (5)
  - DYSPNOEA [None]
  - LUNG NEOPLASM MALIGNANT [None]
  - PNEUMONIA [None]
  - PNEUMOTHORAX [None]
  - PULMONARY EMBOLISM [None]
